FAERS Safety Report 14576321 (Version 2)
Quarter: 2020Q3

REPORT INFORMATION
  Report Type: Report from Study
  Country: KR (occurrence: KR)
  Receive Date: 20180227
  Receipt Date: 20190129
  Transmission Date: 20201104
  Serious: Yes (Hospitalization)
  Sender: FDA-Public Use
  Company Number: KR-ROCHE-2074794

PATIENT
  Age: 54 Year
  Sex: Male
  Weight: 61.2 kg

DRUGS (2)
  1. ALECTINIB. [Suspect]
     Active Substance: ALECTINIB
     Indication: NON-SMALL CELL LUNG CANCER METASTATIC
     Route: 048
     Dates: start: 20171212, end: 20180205
  2. ASPIRIN PROTECT [Concomitant]
     Active Substance: ASPIRIN
     Route: 048

REACTIONS (1)
  - Jaundice [Recovered/Resolved]

NARRATIVE: CASE EVENT DATE: 20180205
